FAERS Safety Report 6411515-9 (Version None)
Quarter: 2009Q4

REPORT INFORMATION
  Report Type: 
  Country: None (occurrence: None)
  Receive Date: 20091023
  Receipt Date: 20091014
  Transmission Date: 20100525
  Serious: Yes (Other)
  Sender: FDA-Public Use
  Company Number: US-JNJFOC-20090804852

PATIENT
  Sex: Female
  Weight: 80.74 kg

DRUGS (14)
  1. REMICADE [Suspect]
     Indication: RHEUMATOID ARTHRITIS
     Route: 042
  2. FOSAMAX [Concomitant]
  3. CALTRATE 600 D [Concomitant]
  4. LOSARTAN [Concomitant]
  5. VERAPAMIL [Concomitant]
  6. CELEBREX [Concomitant]
  7. ZOCOR [Concomitant]
  8. ZANTAC [Concomitant]
  9. LASIX [Concomitant]
  10. POTASSIUM CHLORIDE [Concomitant]
  11. VITAMIN B COMPLEX CAP [Concomitant]
  12. LOVAZA [Concomitant]
  13. NORCO [Concomitant]
  14. PLAQUENIL [Concomitant]
     Indication: RHEUMATOID ARTHRITIS

REACTIONS (1)
  - BREAST CANCER METASTATIC [None]
